FAERS Safety Report 7612325-7 (Version None)
Quarter: 2011Q3

REPORT INFORMATION
  Report Type: 
  Country: None (occurrence: None)
  Receive Date: 20110715
  Receipt Date: 20110712
  Transmission Date: 20111222
  Serious: Yes (Death)
  Sender: FDA-Public Use
  Company Number: US-CELGENEUS-163-21880-11020125

PATIENT
  Sex: Female

DRUGS (18)
  1. FLEXERIL [Concomitant]
     Dosage: 10 MILLIGRAM
     Route: 048
  2. NEXIUM [Concomitant]
     Dosage: 40 MILLIGRAM
     Route: 048
  3. REVLIMID [Suspect]
     Dosage: 10 MILLIGRAM
     Route: 048
     Dates: start: 20101101, end: 20101206
  4. ALBUTEROL SULFATE AUTOHALER [Concomitant]
     Route: 055
  5. PAXIL [Concomitant]
     Dosage: 40 MILLIGRAM
     Route: 048
  6. DARVOCET-N 50 [Concomitant]
     Indication: PAIN
     Dosage: 100/650MG
     Route: 048
  7. ZETIA [Concomitant]
     Dosage: 10 MILLIGRAM
     Route: 048
  8. SYMBICORT [Concomitant]
     Dosage: 160/4.5MCG
     Route: 065
  9. RESTORIL [Concomitant]
     Dosage: 30 MILLIGRAM
     Route: 048
  10. DIOVAN HCT [Concomitant]
     Dosage: 160/12.5
     Route: 048
  11. PROCRIT [Concomitant]
     Dosage: 40,000
     Route: 065
     Dates: start: 20091026
  12. DUONEB [Concomitant]
     Dosage: 3 MILLILITER
     Route: 065
  13. SULAR [Concomitant]
     Dosage: 17 MILLIGRAM
     Route: 048
  14. LORTAB [Concomitant]
     Indication: PAIN
     Dosage: 7.5/500MG
     Route: 048
  15. ATARAX [Concomitant]
     Dosage: 25 MILLIGRAM
     Route: 048
  16. WARFARIN SODIUM [Concomitant]
     Dosage: 1 MILLIGRAM
     Route: 048
  17. LIPITOR [Concomitant]
     Dosage: 80 MILLIGRAM
     Route: 048
  18. FLONASE [Concomitant]
     Dosage: .05 PERCENT
     Route: 045

REACTIONS (2)
  - CHRONIC LYMPHOCYTIC LEUKAEMIA [None]
  - CARDIAC FAILURE CONGESTIVE [None]
